FAERS Safety Report 8273797-0 (Version None)
Quarter: 2012Q2

REPORT INFORMATION
  Report Type: 
  Country: None (occurrence: None)
  Receive Date: 20120409
  Receipt Date: 20120326
  Transmission Date: 20120825
  Serious: Yes (Hospitalization, Other)
  Sender: FDA-Public Use
  Company Number: 2012P1010863

PATIENT
  Age: 44 Year
  Sex: Female

DRUGS (10)
  1. METOPROLOL TARTRATE [Concomitant]
  2. MULTI-VITAMINS [Concomitant]
  3. INSULIN GLARGINE [Concomitant]
  4. INSULIN LISPRO [Concomitant]
  5. GABAPENTIN [Concomitant]
  6. SIMVASTATIN [Suspect]
     Dosage: 20 MG;QD;PO
     Route: 048
  7. AMLODIPINE [Concomitant]
  8. LIDOCAINE EXTERNAL PATCH 5% [Concomitant]
  9. OXYCODONE HCL [Concomitant]
  10. WARFARIN SODIUM [Suspect]
     Indication: ANTIPHOSPHOLIPID SYNDROME
     Dosage: 1-6 MG;QD, 3 MG;QD; 5 MG;QD; 4 MG;QD

REACTIONS (5)
  - INTERNATIONAL NORMALISED RATIO INCREASED [None]
  - HAEMOGLOBIN DECREASED [None]
  - MEAN CELL VOLUME DECREASED [None]
  - HAEMATOCRIT DECREASED [None]
  - MEAN CELL HAEMOGLOBIN CONCENTRATION DECREASED [None]
